FAERS Safety Report 5704630-6 (Version None)
Quarter: 2008Q2

REPORT INFORMATION
  Report Type: 
  Country: None (occurrence: None)
  Receive Date: 20080409
  Receipt Date: 20080327
  Transmission Date: 20081010
  Serious: Yes (Life-Threatening, Disabling, Other)
  Sender: FDA-Public Use
  Company Number: 2007JP001414

PATIENT
  Age: 43 Year
  Sex: Female

DRUGS (25)
  1. TACROLIMUS [Suspect]
     Indication: MYASTHENIA GRAVIS
     Dosage: SEE IMAGE
     Route: 048
     Dates: start: 20060615, end: 20061121
  2. TACROLIMUS [Suspect]
     Indication: MYASTHENIA GRAVIS
     Dosage: SEE IMAGE
     Route: 048
     Dates: start: 20061122, end: 20071208
  3. TACROLIMUS [Suspect]
     Indication: MYASTHENIA GRAVIS
     Dosage: SEE IMAGE
     Route: 048
     Dates: start: 20071215, end: 20071218
  4. TACROLIMUS [Suspect]
     Indication: MYASTHENIA GRAVIS
     Dosage: SEE IMAGE
     Route: 048
     Dates: start: 20071219, end: 20071225
  5. TACROLIMUS [Suspect]
     Indication: MYASTHENIA GRAVIS
     Dosage: SEE IMAGE
     Route: 048
     Dates: start: 20071225, end: 20080115
  6. TACROLIMUS [Suspect]
     Indication: MYASTHENIA GRAVIS
     Dosage: SEE IMAGE
     Route: 048
     Dates: start: 20080116, end: 20080116
  7. ATARAX [Suspect]
     Dosage: 25 MG, /D, ORAL
     Route: 048
     Dates: start: 20060605
  8. IMURAN [Suspect]
     Dosage: 50 MG, /D, ORAL; 100 MG, /D, ORAL; 25 MG/D, ORAL; ORAL
     Route: 048
     Dates: start: 20061206, end: 20061212
  9. IMURAN [Suspect]
     Dosage: 50 MG, /D, ORAL; 100 MG, /D, ORAL; 25 MG/D, ORAL; ORAL
     Route: 048
     Dates: start: 20061213, end: 20061221
  10. IMURAN [Suspect]
     Dosage: 50 MG, /D, ORAL; 100 MG, /D, ORAL; 25 MG/D, ORAL; ORAL
     Route: 048
     Dates: start: 20061222, end: 20070327
  11. IMURAN [Suspect]
     Dosage: 50 MG, /D, ORAL; 100 MG, /D, ORAL; 25 MG/D, ORAL; ORAL
     Route: 048
     Dates: start: 20070330, end: 20071102
  12. IMURAN [Suspect]
     Dosage: 50 MG, /D, ORAL; 100 MG, /D, ORAL; 25 MG/D, ORAL; ORAL
     Route: 048
     Dates: end: 20071109
  13. PREDNISLONE (PREDNISOLONE) [Concomitant]
  14. MESTINON [Concomitant]
  15. OMEPRAZOLE [Concomitant]
  16. SELBEX (TEPRENONE) [Concomitant]
  17. BONALON (ALENDRONIC ACID) [Concomitant]
  18. LIPITOR [Concomitant]
  19. MUCOBULIN (AMBROXOL HYDROCHLORIDE) [Concomitant]
  20. URSO 250 [Concomitant]
  21. MAGNESIUM OXIDE (MAGNESIUM OXIDE) [Concomitant]
  22. INSULIN HUMAN (INSULIN HUMAN) [Concomitant]
  23. ASPARA K (ASPARTATE POTASSIUM) [Concomitant]
  24. NEUTROGIN (LENOGRASTIM) [Concomitant]
  25. IMMUNE GLOBULIN (HUMAN) [Concomitant]

REACTIONS (18)
  - BODY TEMPERATURE DECREASED [None]
  - BONE MARROW DISORDER [None]
  - CHEILITIS [None]
  - CONDITION AGGRAVATED [None]
  - ENTEROCOLITIS [None]
  - GLOSSITIS [None]
  - HEPATIC FUNCTION ABNORMAL [None]
  - HERPES SIMPLEX [None]
  - HYPERGLYCAEMIA [None]
  - HYPOAESTHESIA [None]
  - JAUNDICE [None]
  - MALAISE [None]
  - MUSCULAR WEAKNESS [None]
  - ORAL HERPES [None]
  - PANCYTOPENIA [None]
  - PYREXIA [None]
  - THIRST [None]
  - TINEA VERSICOLOUR [None]
